APPROVED DRUG PRODUCT: RISPERIDONE
Active Ingredient: RISPERIDONE
Strength: 1MG
Dosage Form/Route: TABLET;ORAL
Application: A077784 | Product #003
Applicant: RATIOPHARM
Approved: Jun 8, 2010 | RLD: No | RS: No | Type: DISCN